FAERS Safety Report 9270961 (Version 1)
Quarter: 2013Q2

REPORT INFORMATION
  Report Type: Spontaneous
  Country: FR (occurrence: FR)
  Receive Date: 20130506
  Receipt Date: 20130506
  Transmission Date: 20140414
  Serious: Yes (Other)
  Sender: FDA-Public Use
  Company Number: FR-009507513-1304FRA016928

PATIENT
  Age: 7 Year
  Sex: Female
  Weight: 41 kg

DRUGS (1)
  1. SINGULAIR 4MG COMPRIM? ? CROQUER [Suspect]
     Indication: ASTHMA
     Dosage: 4 MG, QD
     Route: 048
     Dates: start: 201201, end: 20130110

REACTIONS (2)
  - Purpura [Recovered/Resolved]
  - Eosinophil count increased [Recovered/Resolved]
